FAERS Safety Report 8050148-8 (Version None)
Quarter: 2011Q4

REPORT INFORMATION
  Report Type: 
  Country: None (occurrence: None)
  Receive Date: 20111212
  Receipt Date: 20110118
  Transmission Date: 20120403
  Serious: Yes (Hospitalization, Other)
  Sender: FDA-Public Use
  Company Number: PHHY2010US28888

PATIENT
  Age: 46 Year
  Sex: Female

DRUGS (7)
  1. EXTAVIA [Suspect]
     Indication: MULTIPLE SCLEROSIS
     Dosage: 0.3MG,TIW,SUBCUTANEOUS; 0.875MG,QOD, SUBCUTANEOUS; 0.25MG,QOD,SUBCUTANEOUS; 0.3MG,TIW, SUBCUTANEOUS
     Route: 058
     Dates: start: 20100401
  2. EXTAVIA [Suspect]
     Indication: MULTIPLE SCLEROSIS
     Dosage: 0.3MG,TIW,SUBCUTANEOUS; 0.875MG,QOD, SUBCUTANEOUS; 0.25MG,QOD,SUBCUTANEOUS; 0.3MG,TIW, SUBCUTANEOUS
     Route: 058
     Dates: start: 20100320
  3. EXTAVIA [Suspect]
     Indication: MULTIPLE SCLEROSIS
     Dosage: 0.3MG,TIW,SUBCUTANEOUS; 0.875MG,QOD, SUBCUTANEOUS; 0.25MG,QOD,SUBCUTANEOUS; 0.3MG,TIW, SUBCUTANEOUS
     Route: 058
     Dates: start: 20100305
  4. LORTAB [Concomitant]
  5. GABAPENTIN [Concomitant]
  6. IBUPROFEN (IBUPROFEN) [Concomitant]
  7. BACLOFEN [Concomitant]

REACTIONS (5)
  - MALAISE [None]
  - INJECTION SITE RASH [None]
  - FATIGUE [None]
  - INJECTION SITE ERYTHEMA [None]
  - RASH MACULAR [None]
